FAERS Safety Report 13898394 (Version 1)
Quarter: 2017Q3

REPORT INFORMATION
  Report Type: Spontaneous
  Country: US (occurrence: US)
  Receive Date: 20170824
  Receipt Date: 20170824
  Transmission Date: 20171127
  Serious: Yes (Other)
  Sender: FDA-Public Use
  Company Number: US-AMGEN-USASP2017125099

PATIENT
  Age: 56 Year
  Sex: Female
  Weight: 76.64 kg

DRUGS (17)
  1. RASUVO [Concomitant]
     Active Substance: METHOTREXATE SODIUM
     Dosage: 0.4 ML, QWK
     Route: 058
  2. CRANBERRY. [Concomitant]
     Active Substance: CRANBERRY
     Dosage: UNK
  3. XELJANZ XR [Concomitant]
     Active Substance: TOFACITINIB CITRATE
     Dosage: 11 MG, QD
     Route: 048
  4. INFLUENZA [Concomitant]
     Active Substance: INFLUENZA VIRUS VACCINE
     Dosage: UNK
     Dates: start: 20110928
  5. FOLIC ACID. [Concomitant]
     Active Substance: FOLIC ACID
     Dosage: 1 MG, QD
  6. RASUVO [Concomitant]
     Active Substance: METHOTREXATE SODIUM
     Dosage: 0.3 ML, QWK, 1 PEN UNDER THE SKIN
     Route: 058
  7. PREDNISONE. [Concomitant]
     Active Substance: PREDNISONE
     Dosage: UNK
     Route: 048
  8. BIOTIN [Concomitant]
     Active Substance: BIOTIN
     Dosage: UNK
  9. ALENDRONATE [Concomitant]
     Active Substance: ALENDRONATE SODIUM
     Dosage: 70 MG, QWK
  10. PNEUMOCOCCAL VACCINE POLYVALENT NOS [Concomitant]
     Active Substance: PNEUMOCOCCAL VACCINE POLYVALENT
     Dosage: UNK
     Dates: start: 20141215
  11. ENBREL [Suspect]
     Active Substance: ETANERCEPT
     Indication: RHEUMATOID ARTHRITIS
     Dosage: UNK
     Route: 065
     Dates: start: 201507, end: 201606
  12. METHOTREXATE. [Concomitant]
     Active Substance: METHOTREXATE
     Indication: RHEUMATOID ARTHRITIS
     Dosage: UNK
     Dates: start: 2013, end: 2017
  13. ORENCIA [Concomitant]
     Active Substance: ABATACEPT
     Indication: RHEUMATOID ARTHRITIS
     Dosage: 1 ML, QWK, AS DIRECTED
     Route: 058
     Dates: start: 201405, end: 201704
  14. VALSARTAN AND HYDROCHLOROTHIAZIDE [Concomitant]
     Active Substance: HYDROCHLOROTHIAZIDE\VALSARTAN
     Dosage: VALSARTAN 80 MG-HYDROCHLOROTHIAZIDE 12.5 MG, QD
     Route: 048
  15. CALCIUM [Concomitant]
     Active Substance: CALCIUM
     Dosage: 1100 MG, QD
  16. RASUVO [Concomitant]
     Active Substance: METHOTREXATE SODIUM
     Dosage: 0.35 ML, QWK
     Route: 058
  17. VITAMIN D [Concomitant]
     Active Substance: CHOLECALCIFEROL
     Dosage: 1000 MG, QD

REACTIONS (39)
  - Essential hypertension [Unknown]
  - Weight increased [Unknown]
  - Dyspnoea [Unknown]
  - Thoracic outlet syndrome [Unknown]
  - Rash [Unknown]
  - Hypotension [Unknown]
  - Biopsy [Unknown]
  - Skin mass [Unknown]
  - Lipoma [Unknown]
  - Hypercalcaemia [Unknown]
  - Tenosynovitis stenosans [Unknown]
  - Malaise [Unknown]
  - Rotator cuff syndrome [Unknown]
  - Back pain [Unknown]
  - Sinusitis [Unknown]
  - Sjogren^s syndrome [Unknown]
  - Therapy non-responder [Unknown]
  - Overweight [Unknown]
  - Diarrhoea [Unknown]
  - Trigger finger [Recovering/Resolving]
  - Precancerous skin lesion [Unknown]
  - Osteoarthritis [Unknown]
  - Liver function test abnormal [Unknown]
  - Abdominal pain [Unknown]
  - Bursitis [Unknown]
  - Stomatitis [Unknown]
  - Urinary tract infection [Unknown]
  - Lymphadenopathy [Unknown]
  - Osteopenia [Unknown]
  - Anaemia [Unknown]
  - Glossitis [Unknown]
  - Cervical radiculopathy [Unknown]
  - Blister [Unknown]
  - Paraesthesia [Unknown]
  - Visual impairment [Unknown]
  - Nasal ulcer [Unknown]
  - Constipation [Unknown]
  - Dermatitis [Unknown]
  - Sensation of foreign body [Unknown]

NARRATIVE: CASE EVENT DATE: 20151214
